FAERS Safety Report 15488949 (Version 1)
Quarter: 2018Q4

REPORT INFORMATION
  Report Type: Spontaneous
  Country: US (occurrence: US)
  Receive Date: 20181011
  Receipt Date: 20181011
  Transmission Date: 20190205
  Serious: No
  Sender: FDA-Public Use
  Company Number: US-PERRIGO-18US006793

PATIENT
  Sex: Female
  Weight: 90.7 kg

DRUGS (2)
  1. NICOTINE POLACRILEX [Suspect]
     Active Substance: NICOTINE
     Indication: NICOTINE DEPENDENCE
     Dosage: 4 TO 8 MG, QD, PRN
     Route: 002
  2. NICOTINE POLACRILEX [Suspect]
     Active Substance: NICOTINE
     Indication: EUPHORIC MOOD

REACTIONS (2)
  - Off label use [Unknown]
  - Incorrect dose administered [Unknown]
